FAERS Safety Report 23347168 (Version 1)
Quarter: 2023Q4

REPORT INFORMATION
  Report Type: Spontaneous
  Country: US (occurrence: None)
  Receive Date: 20231227
  Receipt Date: 20231227
  Transmission Date: 20240110
  Serious: Yes (Other)
  Sender: FDA-Public Use
  Company Number: None

PATIENT
  Age: 40 Year
  Sex: Female
  Weight: 65.14 kg

DRUGS (1)
  1. TOPIRAMATE [Suspect]
     Active Substance: TOPIRAMATE
     Indication: Epilepsy
     Dosage: FREQUENCY : AT BEDTIME;?
     Route: 048
     Dates: start: 1999, end: 2000

REACTIONS (1)
  - Lethargy [None]

NARRATIVE: CASE EVENT DATE: 19990101
